FAERS Safety Report 5471523-1 (Version None)
Quarter: 2007Q3

REPORT INFORMATION
  Report Type: 
  Country: None (occurrence: None)
  Receive Date: 20070928
  Receipt Date: 20070126
  Transmission Date: 20080115
  Serious: No
  Sender: FDA-Public Use
  Company Number: US-BRISTOL-MYERS SQUIBB COMPANY-13611074

PATIENT
  Age: 55 Year
  Sex: Female

DRUGS (1)
  1. DEFINITY [Suspect]
     Dosage: 3CC OVER 20 SECONDS @ REST, THEN 5CC OVER 30 SEC @ PEEK STRESS
     Route: 042
     Dates: start: 20061212, end: 20061212

REACTIONS (1)
  - LIP SWELLING [None]
